FAERS Safety Report 7053033-3 (Version None)
Quarter: 2010Q4

REPORT INFORMATION
  Report Type: 
  Country: None (occurrence: None)
  Receive Date: 20101013
  Receipt Date: 20101007
  Transmission Date: 20110411
  Serious: Yes (Life-Threatening)
  Sender: FDA-Public Use
  Company Number: 2010SP053334

PATIENT
  Age: 44 Year
  Sex: Female

DRUGS (16)
  1. DIPROSALIC (BETAMETHASONE DIPROPIONATE/SALICYLIC, ACID /01401901/) [Suspect]
     Dosage: TOP
     Route: 061
     Dates: start: 20100424, end: 20100515
  2. FENOFIBRATE [Suspect]
     Dosage: PO
     Route: 048
     Dates: start: 20100301, end: 20100514
  3. ADVIL [Suspect]
     Dosage: 200 MG;QD;PO
     Route: 048
     Dates: start: 20100101, end: 20100515
  4. ASPIRINE DU RHONE (ACETYLSALICYLIC ACID /00002701/) [Suspect]
     Dosage: PO
     Route: 048
     Dates: end: 20100515
  5. NEXEN (NIMESULIDE /00845801/) [Suspect]
     Indication: PRODUCT USED FOR UNKNOWN INDICATION
     Dosage: PO
     Route: 048
     Dates: end: 20100515
  6. NORFLOXACIN [Suspect]
     Indication: PRODUCT USED FOR UNKNOWN INDICATION
     Dosage: PO
     Route: 048
     Dates: end: 20100515
  7. ZALDIAR (PARACETAMOL W/TRAMADOL) [Suspect]
     Indication: PRODUCT USED FOR UNKNOWN INDICATION
     Dosage: PO
     Route: 048
     Dates: end: 20100515
  8. TETRAZEPAM (TETRAZEPAM) [Suspect]
     Indication: PRODUCT USED FOR UNKNOWN INDICATION
     Dosage: PO
     Route: 048
     Dates: start: 20100424, end: 20100515
  9. DOLIPRANE (PARACETAMOL /000200001/) [Suspect]
     Indication: PRODUCT USED FOR UNKNOWN INDICATION
     Dosage: PO
     Route: 048
     Dates: start: 20100424, end: 20100515
  10. TANGANIL (ACETYLLEUCINE) [Suspect]
     Indication: PRODUCT USED FOR UNKNOWN INDICATION
     Dosage: PO
     Route: 048
     Dates: start: 20100424, end: 20100515
  11. LOPERAMIDE [Suspect]
     Indication: PRODUCT USED FOR UNKNOWN INDICATION
     Dosage: PO
     Route: 048
     Dates: start: 20100424, end: 20100615
  12. RHINADVIL (CO-ADVIL) [Suspect]
     Indication: PRODUCT USED FOR UNKNOWN INDICATION
     Dosage: PO
     Route: 048
     Dates: start: 20100301, end: 20100515
  13. DAILY [Concomitant]
  14. TRIDESONIT [Concomitant]
  15. PREDNISOLONE [Concomitant]
  16. SIMVASTATIN [Concomitant]

REACTIONS (1)
  - TOXIC EPIDERMAL NECROLYSIS [None]
